FAERS Safety Report 13621212 (Version 1)
Quarter: 2017Q2

REPORT INFORMATION
  Report Type: Spontaneous
  Country: JP (occurrence: JP)
  Receive Date: 20170607
  Receipt Date: 20170607
  Transmission Date: 20170830
  Serious: Yes (Other)
  Sender: FDA-Public Use
  Company Number: JP-ACCORD-045238

PATIENT
  Age: 65 Year
  Sex: Male

DRUGS (3)
  1. CISPLATIN. [Suspect]
     Active Substance: CISPLATIN
     Indication: EXTRAMAMMARY PAGET^S DISEASE
     Dosage: 2 WEEKS ON/2 WEEKS OFF, PET REGIMEN, PET REGIMEN
  2. EPIRUBICIN [Suspect]
     Active Substance: EPIRUBICIN
     Indication: EXTRAMAMMARY PAGET^S DISEASE
     Dosage: 2 WEEKS ON/2 WEEKS OFF, PET REGIMEN, PET REGIMEN
  3. PACLITAXEL/PACLITAXEL LIPOSOME [Suspect]
     Active Substance: PACLITAXEL
     Indication: EXTRAMAMMARY PAGET^S DISEASE
     Dosage: 2 WEEKS ON/2 WEEKS OFF, PET REGIMEN

REACTIONS (4)
  - Haematotoxicity [Unknown]
  - Fatigue [Unknown]
  - Alopecia [Unknown]
  - Nausea [Unknown]
